FAERS Safety Report 5603002-2 (Version None)
Quarter: 2008Q1

REPORT INFORMATION
  Report Type: 
  Country: None (occurrence: None)
  Receive Date: 20080125
  Receipt Date: 20070531
  Transmission Date: 20080703
  Serious: Yes (Other)
  Sender: FDA-Public Use
  Company Number: US-PFIZER INC-2007018459

PATIENT
  Age: 43 Year
  Sex: Female
  Weight: 75.8 kg

DRUGS (5)
  1. CHANTIX [Suspect]
     Indication: EX-SMOKER
     Route: 048
     Dates: start: 20070301, end: 20070306
  2. LAXATIVES [Concomitant]
  3. IMITREX [Concomitant]
  4. MIRALAX [Concomitant]
  5. MOTRIN [Concomitant]

REACTIONS (2)
  - HEAD DISCOMFORT [None]
  - SWELLING FACE [None]
